FAERS Safety Report 6254090-4 (Version None)
Quarter: 2009Q3

REPORT INFORMATION
  Report Type: 
  Country: None (occurrence: None)
  Receive Date: 20090702
  Receipt Date: 20070611
  Transmission Date: 20100115
  Serious: Yes (Other)
  Sender: FDA-Public Use
  Company Number: US-ASTRAZENECA-2006UW27866

PATIENT
  Age: 17808 Day
  Sex: Female
  Weight: 102.9 kg

DRUGS (17)
  1. SEROQUEL [Suspect]
     Indication: MENTAL DISORDER
     Route: 048
     Dates: start: 20020705
  2. KEPPRA [Concomitant]
     Dates: start: 20060501
  3. TRAZODONE HCL [Concomitant]
     Indication: NERVOUSNESS
     Dosage: 150 MG - 600 MG
     Route: 048
     Dates: start: 19960615
  4. TRAZODONE HCL [Concomitant]
     Indication: PRURITUS
     Dosage: 150 MG - 600 MG
     Route: 048
     Dates: start: 19960615
  5. VICODIN [Concomitant]
     Indication: PAIN
     Dates: start: 20040205
  6. DIOVAN [Concomitant]
     Indication: HYPERTENSION
     Dates: start: 20060127
  7. DIOVAN HCT [Concomitant]
     Dosage: 160/12.5 MG, ONE DAILY
     Dates: start: 20030318
  8. GLIMEPIRIDE [Concomitant]
     Dosage: 1 MG, 2 MG AT MORNING
     Dates: start: 20041105
  9. LORATADINE [Concomitant]
     Dates: start: 20060501
  10. PERCOCET [Concomitant]
     Dosage: 10/650 MG, THREE TIMES A DAY
     Dates: start: 20060127
  11. PROZAC [Concomitant]
     Route: 048
     Dates: start: 19980218
  12. NEURONTIN [Concomitant]
     Dates: start: 20040205
  13. LASIX [Concomitant]
     Dates: start: 20041105
  14. AGGRENOX [Concomitant]
     Dates: start: 20060127
  15. ALLEGRA [Concomitant]
     Dates: start: 20000719
  16. PROTONIX [Concomitant]
     Indication: GASTROOESOPHAGEAL REFLUX DISEASE
     Dates: start: 20041105
  17. PRILOSEC [Concomitant]
     Indication: GASTROOESOPHAGEAL REFLUX DISEASE
     Dates: start: 19981016

REACTIONS (4)
  - DIABETES MELLITUS [None]
  - DIABETIC NEUROPATHY [None]
  - NEUROPATHY PERIPHERAL [None]
  - TYPE 2 DIABETES MELLITUS [None]
